FAERS Safety Report 23113908 (Version 1)
Quarter: 2023Q4

REPORT INFORMATION
  Report Type: Spontaneous
  Country: US (occurrence: US)
  Receive Date: 20231027
  Receipt Date: 20231027
  Transmission Date: 20240110
  Serious: Yes (Other)
  Sender: FDA-Public Use
  Company Number: US-JNJFOC-20231043445

PATIENT
  Age: 78 Year
  Sex: Female

DRUGS (2)
  1. TYLENOL [Suspect]
     Active Substance: ACETAMINOPHEN
     Indication: Pain
     Dosage: ONCE
     Route: 048
     Dates: start: 2023, end: 2023
  2. TYLENOL [Suspect]
     Active Substance: ACETAMINOPHEN
     Dosage: ONCE
     Route: 048
     Dates: start: 2023, end: 2023

REACTIONS (4)
  - Foreign body in throat [Recovered/Resolved]
  - Product size issue [Unknown]
  - Choking sensation [Recovered/Resolved]
  - Incorrect dose administered [Unknown]

NARRATIVE: CASE EVENT DATE: 20230101
